FAERS Safety Report 24055522 (Version 4)
Quarter: 2024Q3

REPORT INFORMATION
  Report Type: Report from Study
  Country: JP (occurrence: JP)
  Receive Date: 20240705
  Receipt Date: 20240820
  Transmission Date: 20241016
  Serious: Yes (Death, Other)
  Sender: BAYER
  Company Number: JP-BAYER-2024A095298

PATIENT
  Age: 73 Year
  Sex: Female

DRUGS (1)
  1. VITRAKVI [Suspect]
     Active Substance: LAROTRECTINIB
     Indication: Malignant neoplasm of unknown primary site
     Dosage: 100 MG, BID
     Route: 048
     Dates: start: 20240626, end: 20240708

REACTIONS (6)
  - General physical health deterioration [Fatal]
  - Renal impairment [Not Recovered/Not Resolved]
  - Creatinine renal clearance decreased [Not Recovered/Not Resolved]
  - Blood pressure decreased [Not Recovered/Not Resolved]
  - Respiratory failure [Not Recovered/Not Resolved]
  - Dehydration [None]

NARRATIVE: CASE EVENT DATE: 20240702
